FAERS Safety Report 6211879-5 (Version None)
Quarter: 2009Q2

REPORT INFORMATION
  Report Type: 
  Country: None (occurrence: None)
  Receive Date: 20090602
  Receipt Date: 20090520
  Transmission Date: 20091009
  Serious: Yes (Other)
  Sender: FDA-Public Use
  Company Number: US-PFIZER INC-2009219384

PATIENT
  Sex: Male
  Weight: 70.295 kg

DRUGS (3)
  1. ZOLOFT [Suspect]
     Indication: PANIC ATTACK
     Dosage: 50 MG, 1X/DAY
     Dates: start: 19940101
  2. ZOLOFT [Suspect]
     Indication: ANXIETY
  3. XANAX [Concomitant]
     Dosage: UNK

REACTIONS (1)
  - NEPHROLITHIASIS [None]
